FAERS Safety Report 4275882-7 (Version None)
Quarter: 2004Q1

REPORT INFORMATION
  Report Type: 
  Country: None (occurrence: None)
  Receive Date: 20040121
  Receipt Date: 20030219
  Transmission Date: 20041129
  Serious: No
  Sender: FDA-Public Use
  Company Number: US-GLAXOSMITHKLINE-A0397164A

PATIENT
  Sex: Female

DRUGS (7)
  1. VALTREX [Suspect]
     Dosage: 500MG PER DAY
     Route: 048
     Dates: start: 20020101
  2. ADVAIR DISKUS 250/50 [Suspect]
     Route: 055
  3. STEROID (UNSPECIFIED) [Suspect]
     Route: 065
  4. ALBUTEROL [Concomitant]
     Route: 065
  5. LORAZEPAM [Concomitant]
  6. MULTIVITAMIN [Concomitant]
  7. UNSPECIFIED MEDICATION [Concomitant]

REACTIONS (4)
  - BLOOD PRESSURE INCREASED [None]
  - HEADACHE [None]
  - NAUSEA [None]
  - PALPITATIONS [None]
